FAERS Safety Report 5326052-2 (Version None)
Quarter: 2007Q2

REPORT INFORMATION
  Report Type: 
  Country: None (occurrence: None)
  Receive Date: 20070516
  Receipt Date: 20070510
  Transmission Date: 20071010
  Serious: Yes (Death)
  Sender: FDA-Public Use
  Company Number: US-ELI_LILLY_AND_COMPANY-US200703002129

PATIENT
  Age: 31 Year
  Sex: Female
  Weight: 105.22 kg

DRUGS (3)
  1. RISPERIDONE [Concomitant]
     Dates: start: 20030328, end: 20031202
  2. ZYPREXA [Suspect]
     Dosage: 10 MG, UNK
     Dates: start: 20020201, end: 20040308
  3. ZYPREXA [Suspect]
     Dosage: 20 MG, UNK

REACTIONS (1)
  - DIABETIC KETOACIDOSIS [None]
